FAERS Safety Report 7703060-5 (Version None)
Quarter: 2011Q3

REPORT INFORMATION
  Report Type: 
  Country: None (occurrence: None)
  Receive Date: 20110817
  Receipt Date: 20110802
  Transmission Date: 20111222
  Serious: Yes (Life-Threatening)
  Sender: FDA-Public Use
  Company Number: 2011S1000251

PATIENT
  Sex: Female

DRUGS (3)
  1. INOMAX [Suspect]
  2. INOMAX [Suspect]
  3. INOMAX [Suspect]
     Indication: NEONATAL ASPIRATION
     Dosage: 20 PPM;CONT;INH
     Route: 055

REACTIONS (2)
  - PNEUMOTHORAX [None]
  - DEVICE FAILURE [None]
